FAERS Safety Report 4342101-2 (Version None)
Quarter: 2004Q2

REPORT INFORMATION
  Report Type: 
  Country: None (occurrence: None)
  Receive Date: 20040420
  Receipt Date: 20040301
  Transmission Date: 20050107
  Serious: Yes (Hospitalization)
  Sender: FDA-Public Use
  Company Number: 2004AP000195

PATIENT
  Sex: Female
  Weight: 65.7716 kg

DRUGS (4)
  1. DILTIAZEM HCL [Suspect]
     Indication: ATRIAL FIBRILLATION
     Dosage: 180 MG;EVERY DAY (DAILY);ORAL
     Route: 048
  2. HYZAAR [Concomitant]
  3. LASIX [Concomitant]
  4. COUMADIN [Concomitant]

REACTIONS (3)
  - ATRIAL FIBRILLATION [None]
  - THERAPEUTIC RESPONSE DECREASED [None]
  - VENTRICULAR TACHYCARDIA [None]
